FAERS Safety Report 4906270-5 (Version None)
Quarter: 2006Q1

REPORT INFORMATION
  Report Type: 
  Country: None (occurrence: None)
  Receive Date: 20060202
  Receipt Date: 20060126
  Transmission Date: 20060701
  Serious: Yes (Other)
  Sender: FDA-Public Use
  Company Number: 2006BH000459

PATIENT
  Age: 54 Year
  Sex: Female

DRUGS (1)
  1. IGIV GENERIC (IMMUNOGLOBULIN HUMAN NORMAL) [Suspect]
     Indication: SELECTIVE IGG SUBCLASS DEFICIENCY
     Dosage: 21 GM; IV
     Route: 042

REACTIONS (7)
  - BRONCHIECTASIS [None]
  - CEREBRAL HAEMORRHAGE [None]
  - CHRONIC SINUSITIS [None]
  - CONVULSION [None]
  - MARROW HYPERPLASIA [None]
  - THROMBOCYTHAEMIA [None]
  - TRANSVERSE SINUS THROMBOSIS [None]
